FAERS Safety Report 4690254-9 (Version None)
Quarter: 2005Q2

REPORT INFORMATION
  Report Type: 
  Country: None (occurrence: None)
  Receive Date: 20050615
  Receipt Date: 20050228
  Transmission Date: 20051028
  Serious: Yes (Hospitalization)
  Sender: FDA-Public Use
  Company Number: DE-MERCK-0503DEU00010

PATIENT
  Age: 69 Year
  Sex: Male

DRUGS (1)
  1. VIOXX [Suspect]
     Indication: RHEUMATOID ARTHRITIS
     Route: 048
     Dates: start: 20010515, end: 20030310

REACTIONS (7)
  - AMNESIA [None]
  - CAROTID ARTERY STENOSIS [None]
  - CEREBROVASCULAR ACCIDENT [None]
  - EPILEPSY [None]
  - EXTRASYSTOLES [None]
  - HEMIPARESIS [None]
  - SUPRAVENTRICULAR TACHYCARDIA [None]
